FAERS Safety Report 16436770 (Version 2)
Quarter: 2019Q3

REPORT INFORMATION
  Report Type: Spontaneous
  Country: US (occurrence: US)
  Receive Date: 20190614
  Receipt Date: 20190708
  Transmission Date: 20191004
  Serious: No
  Sender: FDA-Public Use
  Company Number: US-ALLERGAN-1924483US

PATIENT
  Sex: Male

DRUGS (6)
  1. LUPRON [Concomitant]
     Active Substance: LEUPROLIDE ACETATE
     Indication: PROSTATE CANCER
     Dosage: UNK
     Route: 065
     Dates: start: 20190528, end: 20190528
  2. ANDROGEN DEPRIVATION THERAPY (ADT) (UNSPECIFIED) [Concomitant]
     Indication: PROSTATE CANCER
     Dosage: UNK
  3. TRELSTAR [Suspect]
     Active Substance: TRIPTORELIN PAMOATE
     Dosage: UNK
     Dates: start: 20171108, end: 20171108
  4. PROSTEON [Concomitant]
     Active Substance: MINERALS
     Indication: SUPPLEMENTATION THERAPY
     Route: 065
  5. TRELSTAR [Suspect]
     Active Substance: TRIPTORELIN PAMOATE
     Indication: PROSTATE CANCER
     Dosage: 11.5 MG, SINGLE
     Route: 030
     Dates: start: 20190222, end: 20190222
  6. TRELSTAR [Suspect]
     Active Substance: TRIPTORELIN PAMOATE
     Dosage: UNK
     Route: 030
     Dates: start: 20170321, end: 20170321

REACTIONS (4)
  - Fatigue [Not Recovered/Not Resolved]
  - Product availability issue [Unknown]
  - Syringe issue [Unknown]
  - Rash [Recovered/Resolved]

NARRATIVE: CASE EVENT DATE: 20170321
